FAERS Safety Report 7942399-5 (Version None)
Quarter: 2011Q4

REPORT INFORMATION
  Report Type: 
  Country: None (occurrence: None)
  Receive Date: 20111128
  Receipt Date: 20111118
  Transmission Date: 20120403
  Serious: Yes (Other)
  Sender: FDA-Public Use
  Company Number: US-BAYER-2011-007843

PATIENT
  Age: 17 Year
  Sex: Female
  Weight: 54.422 kg

DRUGS (7)
  1. ZOMIG [Concomitant]
     Indication: MIGRAINE
  2. INDERAL [Concomitant]
     Indication: MIGRAINE PROPHYLAXIS
     Dosage: UNK
     Dates: start: 20070501, end: 20100101
  3. YASMIN [Suspect]
     Indication: MENORRHAGIA
  4. YASMIN [Suspect]
     Indication: MENSTRUAL CYCLE MANAGEMENT
     Dosage: UNK
     Dates: start: 20070313, end: 20070825
  5. OMEPRAZOLE [Concomitant]
     Indication: GASTRITIS
     Dosage: UNK
     Dates: start: 20040101, end: 20100101
  6. YASMIN [Suspect]
     Indication: PREMENSTRUAL SYNDROME
  7. ROBINUL [Concomitant]
     Indication: IRRITABLE BOWEL SYNDROME
     Dosage: UNK
     Dates: start: 20040101, end: 20100101

REACTIONS (9)
  - EMOTIONAL DISTRESS [None]
  - NERVOUSNESS [None]
  - PAIN [None]
  - CHOLECYSTITIS CHRONIC [None]
  - CHOLECYSTECTOMY [None]
  - DEPRESSION [None]
  - BILIARY DYSKINESIA [None]
  - ABDOMINAL PAIN [None]
  - FEAR [None]
